FAERS Safety Report 5721539-2 (Version None)
Quarter: 2008Q2

REPORT INFORMATION
  Report Type: 
  Country: None (occurrence: None)
  Receive Date: 20080429
  Receipt Date: 20070301
  Transmission Date: 20081010
  Serious: No
  Sender: FDA-Public Use
  Company Number: US-ASTRAZENECA-2007UW04019

PATIENT
  Age: 73 Year
  Sex: Female
  Weight: 72.6 kg

DRUGS (7)
  1. NEXIUM [Suspect]
     Indication: OESOPHAGEAL STENOSIS
     Route: 048
     Dates: end: 20070201
  2. VALIUM [Concomitant]
  3. ALPRAZOLAM [Concomitant]
  4. EFFEXOR [Concomitant]
  5. FOLIC ACID [Concomitant]
  6. TRAZODONE HCL [Concomitant]
  7. CENTRUM [Concomitant]

REACTIONS (2)
  - BONE DENSITY DECREASED [None]
  - MULTIPLE FRACTURES [None]
